FAERS Safety Report 6956807-X (Version None)
Quarter: 2010Q3

REPORT INFORMATION
  Report Type: 
  Country: None (occurrence: None)
  Receive Date: 20100826
  Receipt Date: 20100820
  Transmission Date: 20110219
  Serious: Yes (Hospitalization)
  Sender: FDA-Public Use
  Company Number: KV201000274

PATIENT
  Age: 52 Year
  Sex: Male

DRUGS (4)
  1. PREDNISOLONE [Suspect]
     Indication: PEMPHIGUS
     Dosage: 0.8 MG/KG,
  2. AZATHIOPRINE [Suspect]
     Dosage: 150 MG, QD
  3. LINCOMYCIN (LINCOMYCIN) [Concomitant]
  4. NADROPARIN CALCIUM (NADROPARIN CALCIUM) [Concomitant]

REACTIONS (7)
  - EXTRADURAL ABSCESS [None]
  - HAEMORRHAGIC STROKE [None]
  - PERIPHERAL ISCHAEMIA [None]
  - PNEUMONIA [None]
  - TINNITUS [None]
  - VERTIGO [None]
  - VISUAL IMPAIRMENT [None]
